FAERS Safety Report 6448289-1 (Version None)
Quarter: 2009Q4

REPORT INFORMATION
  Report Type: 
  Country: None (occurrence: None)
  Receive Date: 20091120
  Receipt Date: 20091111
  Transmission Date: 20100525
  Serious: Yes (Other)
  Sender: FDA-Public Use
  Company Number: PHHY2009AU49282

PATIENT
  Sex: Female

DRUGS (2)
  1. TASIGNA [Suspect]
     Indication: CHRONIC MYELOID LEUKAEMIA
     Dosage: 800 MG, UNK
     Route: 048
     Dates: start: 20091022, end: 20091029
  2. TASIGNA [Suspect]
     Dosage: 200 MG PER DAY
     Route: 048
     Dates: start: 20091110

REACTIONS (3)
  - HEADACHE [None]
  - PAIN [None]
  - SINUS HEADACHE [None]
